FAERS Safety Report 5468016-4 (Version None)
Quarter: 2007Q3

REPORT INFORMATION
  Report Type: 
  Country: None (occurrence: None)
  Receive Date: 20070926
  Receipt Date: 20070920
  Transmission Date: 20080115
  Serious: Yes (Hospitalization)
  Sender: FDA-Public Use
  Company Number: BR-ASTRAZENECA-2007UW20289

PATIENT
  Age: 18357 Day
  Sex: Female

DRUGS (16)
  1. XELOX [Suspect]
     Indication: COLORECTAL CANCER METASTATIC
     Dosage: OXALIPLATIN
     Route: 042
     Dates: start: 20070809
  2. XELOX [Suspect]
     Dosage: CAPECITABINE
     Route: 048
     Dates: start: 20070809
  3. ZD2171 CODE NOT BROKEN [Suspect]
     Indication: COLORECTAL CANCER METASTATIC
     Route: 048
     Dates: start: 20070809, end: 20070822
  4. ONDANSETRON [Concomitant]
     Indication: VOMITING
     Route: 042
     Dates: start: 20070822
  5. HEPARIN [Concomitant]
     Indication: THROMBOSIS
     Route: 058
     Dates: start: 20070823
  6. CAPTOPRIL [Concomitant]
     Indication: HYPERTENSION
     Route: 048
     Dates: start: 20050101
  7. GRANISETRON  HCL [Concomitant]
     Indication: PROPHYLAXIS
     Route: 048
     Dates: start: 20070809, end: 20070811
  8. DEXAMETHASONE 0.5MG TAB [Concomitant]
     Indication: PROPHYLAXIS
     Route: 048
     Dates: start: 20070809, end: 20070811
  9. OMEPRAZOLE [Concomitant]
     Indication: PROPHYLAXIS
     Route: 042
     Dates: start: 20070822
  10. BROMOPRIDE [Concomitant]
     Indication: NAUSEA
     Route: 042
     Dates: start: 20070822
  11. BROMOPRIDE [Concomitant]
     Indication: VOMITING
     Route: 042
     Dates: start: 20070822
  12. RANITIDINE [Concomitant]
     Indication: PROPHYLAXIS
     Route: 048
     Dates: start: 20070808
  13. LOPERAMIDE HCL [Concomitant]
     Indication: DIARRHOEA
     Route: 048
     Dates: start: 20070815, end: 20070815
  14. DIPIRONA [Concomitant]
     Indication: PAIN
     Route: 048
     Dates: start: 20070802
  15. CIPROFLOXACIN [Concomitant]
     Indication: DIARRHOEA
     Route: 042
     Dates: start: 20070822
  16. METOCLOPRAMIDE [Concomitant]
     Indication: NAUSEA
     Route: 048
     Dates: start: 20070809, end: 20070815

REACTIONS (1)
  - DEHYDRATION [None]
